FAERS Safety Report 6887183-9 (Version None)
Quarter: 2010Q3

REPORT INFORMATION
  Report Type: 
  Country: None (occurrence: None)
  Receive Date: 20100730
  Receipt Date: 20100719
  Transmission Date: 20110219
  Serious: Yes (Death)
  Sender: FDA-Public Use
  Company Number: BR-PFIZER INC-2010089818

PATIENT
  Sex: Male

DRUGS (3)
  1. SILDENAFIL CITRATE [Suspect]
     Indication: VENOUS OCCLUSION
     Dosage: 100 MG, DAILY
     Route: 048
     Dates: start: 20080220
  2. SYNTHROID [Concomitant]
     Dosage: UNK
     Dates: start: 20080101, end: 20080101
  3. SPIRIVA [Concomitant]
     Dosage: UNK
     Dates: start: 20080101, end: 20080101

REACTIONS (1)
  - DEATH [None]
